FAERS Safety Report 12024397 (Version 1)
Quarter: 2016Q1

REPORT INFORMATION
  Report Type: Report from Study
  Country: US (occurrence: US)
  Receive Date: 20160206
  Receipt Date: 20160206
  Transmission Date: 20160526
  Serious: No
  Sender: FDA-Public Use
  Company Number: US-ABBVIE-15K-163-1476915-00

PATIENT
  Age: 58 Year
  Sex: Male

DRUGS (1)
  1. HUMIRA [Suspect]
     Active Substance: ADALIMUMAB
     Indication: COLITIS ULCERATIVE
     Route: 058
     Dates: start: 20150512

REACTIONS (9)
  - Feeling abnormal [Unknown]
  - Pain [Not Recovered/Not Resolved]
  - Migraine [Unknown]
  - Diarrhoea [Unknown]
  - Adverse drug reaction [Unknown]
  - Chest pain [Not Recovered/Not Resolved]
  - Haemorrhage [Unknown]
  - Drug ineffective [Not Recovered/Not Resolved]
  - Contusion [Not Recovered/Not Resolved]

NARRATIVE: CASE EVENT DATE: 2015
